FAERS Safety Report 14141007 (Version 1)
Quarter: 2017Q4

REPORT INFORMATION
  Report Type: Spontaneous
  Country: US (occurrence: US)
  Receive Date: 20171027
  Receipt Date: 20171027
  Transmission Date: 20180321
  Serious: No
  Sender: FDA-Public Use
  Company Number: None

PATIENT
  Age: 62 Year
  Sex: Male

DRUGS (1)
  1. LINEZOLID. [Suspect]
     Active Substance: LINEZOLID
     Route: 048

REACTIONS (9)
  - Throat tightness [None]
  - Diarrhoea [None]
  - Muscle fatigue [None]
  - Weight decreased [None]
  - Somnolence [None]
  - Oedema peripheral [None]
  - Palpitations [None]
  - Therapy cessation [None]
  - Tremor [None]

NARRATIVE: CASE EVENT DATE: 20171021
